FAERS Safety Report 26185602 (Version 1)
Quarter: 2025Q4

REPORT INFORMATION
  Report Type: Spontaneous
  Country: US (occurrence: US)
  Receive Date: 20251222
  Receipt Date: 20251222
  Transmission Date: 20260117
  Serious: No
  Sender: CELLTRION
  Company Number: US-CELLTRION INC.-2025US015936

PATIENT

DRUGS (10)
  1. RITUXIMAB [Suspect]
     Active Substance: RITUXIMAB
     Indication: Nephropathy
     Dosage: 1000 MG, Q2WEEKS (FIRST ROUND, TWO DOSES)
     Route: 042
     Dates: start: 202311
  2. RITUXIMAB [Suspect]
     Active Substance: RITUXIMAB
     Dosage: 1000 MG, Q2WEEKS (FIRST ROUND, TWO DOSES)
     Route: 042
     Dates: end: 202311
  3. RITUXIMAB [Suspect]
     Active Substance: RITUXIMAB
     Dosage: 1000 MG, Q2WEEKS (SECOND ROUND, 6MONTHS LATER, TWO DOSES)
     Route: 042
  4. RITUXIMAB [Suspect]
     Active Substance: RITUXIMAB
     Dosage: 1000 MG, Q2WEEKS (SECOND ROUND, 6MONTHS LATER, TWO DOSES)
     Route: 042
  5. ATOVAQUONE [Concomitant]
     Active Substance: ATOVAQUONE
     Indication: Antifungal prophylaxis
     Dosage: 1500 MG, DAILY
     Dates: start: 202311
  6. DARBEPOETIN ALFA [Concomitant]
     Active Substance: DARBEPOETIN ALFA
     Indication: Anaemia
     Dosage: 25 MICROGRAM, MONTHLY
  7. DARBEPOETIN ALFA [Concomitant]
     Active Substance: DARBEPOETIN ALFA
     Dosage: 40 MICROGRAM, MONTHLY
  8. FERROUS SULFATE [Concomitant]
     Active Substance: FERROUS SULFATE
     Indication: Anaemia
     Dosage: 142 MG, DAILY
     Route: 048
  9. ENTECAVIR [Concomitant]
     Active Substance: ENTECAVIR
     Indication: Antiviral prophylaxis
     Dosage: 0.5 MG EVERY 72 H
     Dates: start: 202311
  10. ENTECAVIR [Concomitant]
     Active Substance: ENTECAVIR
     Dosage: 0.5 MG EVERY 48 H

REACTIONS (1)
  - Drug effective for unapproved indication [Unknown]
